FAERS Safety Report 23414150 (Version 2)
Quarter: 2024Q2

REPORT INFORMATION
  Report Type: Spontaneous
  Country: DE (occurrence: DE)
  Receive Date: 20240117
  Receipt Date: 20240507
  Transmission Date: 20240715
  Serious: Yes (Hospitalization)
  Sender: FDA-Public Use
  Company Number: DE-JNJFOC-20240122049

PATIENT
  Age: 27 Year
  Sex: Female

DRUGS (1)
  1. TREMFYA [Suspect]
     Active Substance: GUSELKUMAB
     Indication: Psoriasis
     Route: 058
     Dates: start: 20231024, end: 20231121

REACTIONS (2)
  - Central nervous system lesion [Unknown]
  - Migraine [Unknown]

NARRATIVE: CASE EVENT DATE: 20231117
